FAERS Safety Report 15309622 (Version 1)
Quarter: 2018Q3

REPORT INFORMATION
  Report Type: Spontaneous
  Country: DE (occurrence: DE)
  Receive Date: 20180823
  Receipt Date: 20180823
  Transmission Date: 20181010
  Serious: Yes (Hospitalization)
  Sender: FDA-Public Use
  Company Number: DE-TEVA-2018-DE-945528

PATIENT
  Age: 35 Year
  Sex: Female

DRUGS (8)
  1. CLOZAPINE. [Suspect]
     Active Substance: CLOZAPINE
     Dosage: 100 MILLIGRAM DAILY;
     Route: 048
     Dates: start: 200710, end: 201412
  2. AMISULPRID [Suspect]
     Active Substance: AMISULPRIDE
     Dosage: 400 MILLIGRAM DAILY;
     Route: 048
     Dates: start: 20171123
  3. CLOZAPINE. [Suspect]
     Active Substance: CLOZAPINE
     Route: 048
     Dates: start: 201501, end: 201510
  4. BISOPROLOL [Concomitant]
     Active Substance: BISOPROLOL
     Dosage: 2.5?10MG INTAKE FOR YEARS
     Route: 048
  5. THYRONAJOD [Concomitant]
     Active Substance: LEVOTHYROXINE SODIUM\POTASSIUM IODIDE
     Dosage: 50 MICROGRAM DAILY; TAKING FOR YEARS
     Route: 048
  6. AMISULPRID [Suspect]
     Active Substance: AMISULPRIDE
     Route: 048
     Dates: start: 201501, end: 201510
  7. AMISULPRID [Suspect]
     Active Substance: AMISULPRIDE
     Route: 048
     Dates: start: 201511, end: 20171122
  8. CLOZAPINE. [Suspect]
     Active Substance: CLOZAPINE
     Dates: start: 201511, end: 201711

REACTIONS (1)
  - Hepatic enzyme increased [Not Recovered/Not Resolved]

NARRATIVE: CASE EVENT DATE: 20171123
